FAERS Safety Report 19494172 (Version 2)
Quarter: 2021Q4

REPORT INFORMATION
  Report Type: Spontaneous
  Country: CA (occurrence: CA)
  Receive Date: 20210706
  Receipt Date: 20211123
  Transmission Date: 20220303
  Serious: Yes (Hospitalization, Other)
  Sender: FDA-Public Use
  Company Number: CA-ABBVIE-21K-028-3974142-00

PATIENT
  Age: 45 Year
  Sex: Female
  Weight: 86 kg

DRUGS (14)
  1. HUMIRA [Suspect]
     Active Substance: ADALIMUMAB
     Indication: Colitis ulcerative
     Route: 058
  2. INFLECTRA [Suspect]
     Active Substance: INFLIXIMAB-DYYB
     Indication: Colitis ulcerative
     Dosage: 0,2,6, AND THEN EVERY 8 WEEKS
     Route: 042
     Dates: start: 20201120, end: 20201231
  3. INFLECTRA [Suspect]
     Active Substance: INFLIXIMAB-DYYB
     Dosage: 0,2,6, AND THEN EVERY 8 WEEKS
     Route: 042
     Dates: start: 20201231, end: 20201231
  4. INFLECTRA [Suspect]
     Active Substance: INFLIXIMAB-DYYB
     Dosage: 0,2,6, AND THEN EVERY 8 WEEKS
     Route: 042
     Dates: start: 20210221, end: 20210221
  5. INFLECTRA [Suspect]
     Active Substance: INFLIXIMAB-DYYB
     Dosage: 0,2,6, AND THEN EVERY 8 WEEKS
     Route: 042
     Dates: start: 20210322, end: 20210322
  6. INFLECTRA [Suspect]
     Active Substance: INFLIXIMAB-DYYB
     Dosage: 0,2,6, AND THEN EVERY 8 WEEKS
     Route: 042
     Dates: start: 20210322, end: 20210322
  7. INFLECTRA [Suspect]
     Active Substance: INFLIXIMAB-DYYB
     Route: 042
     Dates: start: 20210322, end: 20210322
  8. INFLECTRA [Suspect]
     Active Substance: INFLIXIMAB-DYYB
     Dosage: 0,2, 6,8 WEEKS
     Route: 042
     Dates: start: 20210419, end: 2021
  9. INFLECTRA [Suspect]
     Active Substance: INFLIXIMAB-DYYB
     Dosage: 0,2,6, AND THEN EVERY 8 WEEKS
     Route: 042
     Dates: start: 20210521, end: 20210521
  10. ENTYVIO [Suspect]
     Active Substance: VEDOLIZUMAB
     Indication: Colitis ulcerative
     Route: 065
  11. ASACOL [Suspect]
     Active Substance: MESALAMINE
     Indication: Colitis ulcerative
     Route: 065
  12. VEDOLIZUMAB [Suspect]
     Active Substance: VEDOLIZUMAB
     Indication: Product used for unknown indication
     Route: 065
  13. AMINOSALICYLIC ACID [Suspect]
     Active Substance: AMINOSALICYLIC ACID
     Indication: Product used for unknown indication
     Route: 065
  14. PREDNISONE [Concomitant]
     Active Substance: PREDNISONE
     Indication: Product used for unknown indication
     Route: 065
     Dates: end: 202105

REACTIONS (15)
  - Porphyria acute [Not Recovered/Not Resolved]
  - Drug intolerance [Unknown]
  - Feeling hot [Recovered/Resolved]
  - Dizziness [Recovered/Resolved]
  - Malaise [Unknown]
  - White blood cell count increased [Unknown]
  - Nasopharyngitis [Unknown]
  - Drug ineffective [Unknown]
  - Pancreatitis [Unknown]
  - Drug ineffective [Not Recovered/Not Resolved]
  - Laboratory test abnormal [Unknown]
  - Colitis ulcerative [Not Recovered/Not Resolved]
  - Drug ineffective [Unknown]
  - Drug ineffective [Unknown]
  - Off label use [Unknown]

NARRATIVE: CASE EVENT DATE: 20201120
